FAERS Safety Report 22329549 (Version 1)
Quarter: 2023Q2

REPORT INFORMATION
  Report Type: Spontaneous
  Country: US (occurrence: None)
  Receive Date: 20230517
  Receipt Date: 20230517
  Transmission Date: 20230722
  Serious: No
  Sender: FDA-Public Use
  Company Number: US-ROCHE-3080987

PATIENT
  Sex: Female
  Weight: 122 kg

DRUGS (10)
  1. ACTEMRA [Suspect]
     Active Substance: TOCILIZUMAB
     Indication: Giant cell arteritis
     Dosage: 4MG X 55KG = 220 MG
     Route: 042
  2. FELDENE [Concomitant]
     Active Substance: PIROXICAM
  3. CODEINE [Concomitant]
     Active Substance: CODEINE
  4. CIPRO [Concomitant]
     Active Substance: CIPROFLOXACIN HYDROCHLORIDE
  5. PREDNISONE [Concomitant]
     Active Substance: PREDNISONE
  6. LINAGLIPTIN [Concomitant]
     Active Substance: LINAGLIPTIN
  7. METFORMIN [Concomitant]
     Active Substance: METFORMIN HYDROCHLORIDE
  8. LOSARTAN [Concomitant]
     Active Substance: LOSARTAN
  9. PEPCID [Concomitant]
     Active Substance: FAMOTIDINE
  10. CALCIUM [Concomitant]
     Active Substance: CALCIUM

REACTIONS (2)
  - Off label use [Unknown]
  - No adverse event [Unknown]
